FAERS Safety Report 15791674 (Version 1)
Quarter: 2019Q1

REPORT INFORMATION
  Report Type: Spontaneous
  Country: US (occurrence: US)
  Receive Date: 20190105
  Receipt Date: 20190105
  Transmission Date: 20190417
  Serious: No
  Sender: FDA-Public Use
  Company Number: US-DRREDDYS-USA/USA/18/0106553

PATIENT
  Age: 94 Year
  Sex: Female
  Weight: 59 kg

DRUGS (1)
  1. LEVOCETIRIZINE DIHYDROCHLORIDE TABLETS [Suspect]
     Active Substance: LEVOCETIRIZINE DIHYDROCHLORIDE
     Indication: RHINORRHOEA
     Route: 048
     Dates: start: 20181229

REACTIONS (2)
  - Drug ineffective [Unknown]
  - Product quality issue [Unknown]
